FAERS Safety Report 4502257-5 (Version None)
Quarter: 2004Q4

REPORT INFORMATION
  Report Type: 
  Country: None (occurrence: None)
  Receive Date: 20041109
  Receipt Date: 20041022
  Transmission Date: 20050328
  Serious: Yes (Hospitalization, Other)
  Sender: FDA-Public Use
  Company Number: CA_040707160

PATIENT
  Age: 73 Year
  Sex: Male
  Weight: 99 kg

DRUGS (8)
  1. PEMETREXED [Suspect]
     Indication: NON-SMALL CELL LUNG CANCER STAGE IV
     Dosage: 900 MG/M2 OTHER
     Dates: start: 20040712
  2. FOLIC ACID [Concomitant]
  3. VITAMIN B-12 [Concomitant]
  4. DEXAMETHASONE [Concomitant]
  5. ZOFRAN [Concomitant]
  6. DOCUSATE [Concomitant]
  7. COLACE (DOCUSATE SODIUM) [Concomitant]
  8. SENOKOT (SENNA ALEXANDRINA FRUIT) [Concomitant]

REACTIONS (13)
  - CHEST X-RAY ABNORMAL [None]
  - COUGH [None]
  - HAEMATOCRIT DECREASED [None]
  - HAEMOGLOBIN DECREASED [None]
  - LUNG INFILTRATION [None]
  - MEAN PLATELET VOLUME DECREASED [None]
  - NEUTROPHIL COUNT DECREASED [None]
  - PAROTITIS [None]
  - PYREXIA [None]
  - RASH MACULO-PAPULAR [None]
  - RASH PRURITIC [None]
  - RED BLOOD CELL COUNT DECREASED [None]
  - WHITE BLOOD CELL COUNT DECREASED [None]
